FAERS Safety Report 5895437-8 (Version None)
Quarter: 2008Q3

REPORT INFORMATION
  Report Type: 
  Country: None (occurrence: None)
  Receive Date: 20080924
  Receipt Date: 20080911
  Transmission Date: 20090109
  Serious: Yes (Death)
  Sender: FDA-Public Use
  Company Number: FR-AVENTIS-200813258FR

PATIENT
  Age: 75 Year
  Sex: Male

DRUGS (10)
  1. TAXOTERE [Suspect]
     Route: 042
     Dates: start: 20080809, end: 20080809
  2. CARBOPLATIN [Suspect]
     Route: 042
     Dates: start: 20080809, end: 20080809
  3. XELODA [Suspect]
     Route: 048
     Dates: start: 20080809, end: 20080815
  4. CORDARONE [Concomitant]
     Indication: DRUG USE FOR UNKNOWN INDICATION
  5. TRIATEC                            /00885601/ [Concomitant]
     Indication: DRUG USE FOR UNKNOWN INDICATION
  6. AVK [Concomitant]
     Indication: DRUG USE FOR UNKNOWN INDICATION
  7. GLUCOPHAGE [Concomitant]
     Indication: DRUG USE FOR UNKNOWN INDICATION
  8. DIAMICRON [Concomitant]
     Indication: DRUG USE FOR UNKNOWN INDICATION
  9. ZOLOFT [Concomitant]
     Indication: DRUG USE FOR UNKNOWN INDICATION
  10. NEURONTIN [Concomitant]
     Indication: DRUG USE FOR UNKNOWN INDICATION

REACTIONS (2)
  - ACUTE CORONARY SYNDROME [None]
  - FEBRILE BONE MARROW APLASIA [None]
